FAERS Safety Report 6458728-8 (Version None)
Quarter: 2009Q4

REPORT INFORMATION
  Report Type: 
  Country: None (occurrence: None)
  Receive Date: 20091127
  Receipt Date: 20091113
  Transmission Date: 20100525
  Serious: Yes (Hospitalization)
  Sender: FDA-Public Use
  Company Number: HK-ROCHE-666837

PATIENT
  Age: 50 Year
  Sex: Female

DRUGS (4)
  1. PEG-INTERFERON ALFA 2A (RO 25-8310) [Suspect]
     Indication: HEPATITIS C
     Route: 058
     Dates: start: 20090716, end: 20091021
  2. PEG-INTERFERON ALFA 2A (RO 25-8310) [Suspect]
     Route: 058
     Dates: start: 20091021, end: 20091102
  3. PEG-INTERFERON ALFA 2A (RO 25-8310) [Suspect]
     Dosage: DOSE REDUCED
     Route: 058
     Dates: start: 20091112
  4. RIBAVIRIN [Suspect]
     Indication: HEPATITIS C
     Dosage: FREQ: DAILY.
     Route: 048
     Dates: start: 20090716, end: 20091021

REACTIONS (3)
  - ANAEMIA [None]
  - GINGIVAL BLEEDING [None]
  - THROMBOCYTOPENIA [None]
